FAERS Safety Report 12180484 (Version 3)
Quarter: 2016Q2

REPORT INFORMATION
  Report Type: Report from Study
  Country: BR (occurrence: BR)
  Receive Date: 20160315
  Receipt Date: 20160511
  Transmission Date: 20160815
  Serious: No
  Sender: FDA-Public Use
  Company Number: PHHY2016BR026484

PATIENT
  Sex: Female
  Weight: 56 kg

DRUGS (1)
  1. TASIGNA [Suspect]
     Active Substance: NILOTINIB
     Indication: CHRONIC MYELOID LEUKAEMIA
     Dosage: 2 DF, Q12H (2 IN THE MORNING AND 2 AT NIGHT)
     Route: 048
     Dates: start: 201602

REACTIONS (12)
  - Hyperhidrosis [Unknown]
  - Fatigue [Unknown]
  - Platelet count decreased [Recovered/Resolved]
  - Asthenia [Unknown]
  - Head discomfort [Unknown]
  - Hypophagia [Unknown]
  - Decreased appetite [Unknown]
  - Malaise [Unknown]
  - Abdominal discomfort [Unknown]
  - Pain in extremity [Not Recovered/Not Resolved]
  - Headache [Not Recovered/Not Resolved]
  - Chills [Unknown]
